FAERS Safety Report 6861658-0 (Version None)
Quarter: 2010Q3

REPORT INFORMATION
  Report Type: 
  Country: None (occurrence: None)
  Receive Date: 20100721
  Receipt Date: 20100712
  Transmission Date: 20110219
  Serious: No
  Sender: FDA-Public Use
  Company Number: US-BIOGENIDEC-2010BI022998

PATIENT
  Sex: Female

DRUGS (1)
  1. TYSABRI [Suspect]
     Indication: MULTIPLE SCLEROSIS
     Route: 042
     Dates: start: 20091106, end: 20100505

REACTIONS (6)
  - DYSPHONIA [None]
  - FEELING COLD [None]
  - HYPERHIDROSIS [None]
  - MUSCULAR WEAKNESS [None]
  - NERVOUSNESS [None]
  - TREMOR [None]
